FAERS Safety Report 7419144-5 (Version None)
Quarter: 2011Q2

REPORT INFORMATION
  Report Type: 
  Country: None (occurrence: None)
  Receive Date: 20110415
  Receipt Date: 20110407
  Transmission Date: 20111010
  Serious: Yes (Death, Hospitalization)
  Sender: FDA-Public Use
  Company Number: US-GENZYME-CLOF-1001465

PATIENT
  Sex: Male
  Weight: 70 kg

DRUGS (7)
  1. MITOXANTRONE [Suspect]
     Indication: ACUTE MYELOID LEUKAEMIA
     Dosage: 15.2 MG, QDX3
     Route: 042
     Dates: start: 20110214, end: 20110216
  2. CLOLAR [Suspect]
     Indication: ACUTE MYELOID LEUKAEMIA
     Dosage: 38 MG, QDX5
     Route: 042
     Dates: start: 20110215, end: 20110219
  3. ETOPOSIDE [Suspect]
     Indication: ACUTE MYELOID LEUKAEMIA
     Dosage: 190 MG, QDX5
     Route: 042
     Dates: start: 20110214, end: 20110218
  4. CIPRO [Concomitant]
     Indication: ANTIBIOTIC PROPHYLAXIS
     Dosage: 500 MG, BID
     Route: 048
     Dates: start: 20100219
  5. PROTONIX [Concomitant]
     Indication: GASTROOESOPHAGEAL REFLUX PROPHYLAXIS
     Dosage: 40 MG, QD
     Route: 048
     Dates: start: 20100219
  6. VALTREX [Concomitant]
     Indication: ANTIVIRAL PROPHYLAXIS
     Dosage: 1 G, QD
     Route: 048
     Dates: start: 20100219
  7. LUNESTA [Concomitant]
     Indication: INSOMNIA
     Dosage: 3 MG, QS; STARTED AT BASELINE
     Route: 048

REACTIONS (3)
  - PNEUMONIA [None]
  - DISEASE PROGRESSION [None]
  - FEBRILE NEUTROPENIA [None]
